FAERS Safety Report 6757830-0 (Version None)
Quarter: 2010Q2

REPORT INFORMATION
  Report Type: 
  Country: None (occurrence: None)
  Receive Date: 20100607
  Receipt Date: 20100526
  Transmission Date: 20101027
  Serious: Yes (Other)
  Sender: FDA-Public Use
  Company Number: PHHY2010DE34115

PATIENT
  Age: 48 Year
  Sex: Female

DRUGS (4)
  1. ZOMETA [Suspect]
     Dosage: UNK
     Dates: start: 20050101
  2. ARIMIDEX [Concomitant]
     Dosage: UNK
     Dates: start: 20020101
  3. BISOPROLOL [Concomitant]
  4. XELODA [Concomitant]

REACTIONS (3)
  - OSTEONECROSIS OF JAW [None]
  - SEQUESTRECTOMY [None]
  - WOUND TREATMENT [None]
